FAERS Safety Report 5574996-9 (Version None)
Quarter: 2007Q4

REPORT INFORMATION
  Report Type: 
  Country: None (occurrence: None)
  Receive Date: 20071227
  Receipt Date: 20071218
  Transmission Date: 20080405
  Serious: Yes (Hospitalization)
  Sender: FDA-Public Use
  Company Number: B0500919A

PATIENT
  Age: 51 Year
  Sex: Female

DRUGS (7)
  1. AUGMENTIN '125' [Suspect]
     Indication: BRONCHITIS
     Dosage: 2TAB PER DAY
     Route: 048
     Dates: start: 20071102, end: 20071102
  2. ZOPHREN [Suspect]
     Indication: NAUSEA
     Route: 048
     Dates: start: 20070912, end: 20071024
  3. DEPAKENE [Suspect]
     Indication: EPILEPSY
     Dosage: 1000MG PER DAY
     Route: 048
     Dates: start: 20070913, end: 20071128
  4. KEPPRA [Suspect]
     Indication: EPILEPSY
     Dosage: 750MG TWICE PER DAY
     Route: 048
     Dates: start: 20070714
  5. TEMODAL [Suspect]
     Indication: GLIOBLASTOMA
     Dosage: 120MG PER DAY
     Route: 048
     Dates: start: 20070912, end: 20071024
  6. MEDROL [Suspect]
     Indication: EPILEPSY
     Dosage: 32MG PER DAY
     Route: 048
     Dates: start: 20070714, end: 20071024
  7. RADIOTHERAPY [Concomitant]
     Indication: GLIOBLASTOMA
     Dates: start: 20070912, end: 20071024

REACTIONS (8)
  - ALANINE AMINOTRANSFERASE INCREASED [None]
  - ASPARTATE AMINOTRANSFERASE INCREASED [None]
  - BLOOD ALKALINE PHOSPHATASE INCREASED [None]
  - BLOOD BILIRUBIN INCREASED [None]
  - GAMMA-GLUTAMYLTRANSFERASE INCREASED [None]
  - HYPERTROPHY [None]
  - JAUNDICE [None]
  - MIXED HEPATOCELLULAR-CHOLESTATIC INJURY [None]
